FAERS Safety Report 15547728 (Version 2)
Quarter: 2019Q4

REPORT INFORMATION
  Report Type: Report from Study
  Country: US (occurrence: US)
  Receive Date: 20181024
  Receipt Date: 20191211
  Transmission Date: 20200122
  Serious: Yes (Other)
  Sender: FDA-Public Use
  Company Number: US-SHIRE-US201840128

PATIENT
  Age: 45 Year
  Sex: Female
  Weight: 53.06 kg

DRUGS (1)
  1. HUMAN NORMAL IMMUNOGLOBULIN; LIQUID 20 [Suspect]
     Active Substance: HUMAN IMMUNOGLOBULIN G
     Indication: IMMUNODEFICIENCY COMMON VARIABLE
     Dosage: 6 GRAM, 1X/WEEK
     Route: 058
     Dates: end: 201810

REACTIONS (4)
  - Rheumatoid arthritis [Unknown]
  - Urticaria [Recovered/Resolved]
  - Lacrimation increased [Recovering/Resolving]
  - Eye swelling [Not Recovered/Not Resolved]

NARRATIVE: CASE EVENT DATE: 20181013
